FAERS Safety Report 24426348 (Version 1)
Quarter: 2024Q4

REPORT INFORMATION
  Report Type: Spontaneous
  Country: US (occurrence: US)
  Receive Date: 20241011
  Receipt Date: 20241011
  Transmission Date: 20250115
  Serious: Yes (Other)
  Sender: GLAXOSMITHKLINE
  Company Number: US-GSK-US2024AMR124021

PATIENT

DRUGS (1)
  1. ZEJULA [Suspect]
     Active Substance: NIRAPARIB
     Indication: Ovarian cancer
     Dosage: 100 MG (FOR 5 DAYS EACH WEEK)
     Route: 048
     Dates: start: 20240602

REACTIONS (9)
  - Meniere^s disease [Unknown]
  - Insomnia [Unknown]
  - Flatulence [Unknown]
  - Herpes zoster [Unknown]
  - Pruritus [Unknown]
  - Nausea [Unknown]
  - Dyspepsia [Unknown]
  - Anxiety [Unknown]
  - Inappropriate schedule of product administration [Unknown]

NARRATIVE: CASE EVENT DATE: 20240602
